FAERS Safety Report 4770700-2 (Version None)
Quarter: 2005Q3

REPORT INFORMATION
  Report Type: 
  Country: None (occurrence: None)
  Receive Date: 20050915
  Receipt Date: 20050902
  Transmission Date: 20060218
  Serious: Yes (Disabling)
  Sender: FDA-Public Use
  Company Number: 2005SE05123

PATIENT
  Sex: Female
  Weight: 87 kg

DRUGS (1)
  1. XYLOCAINE W/ EPINEPHRENE [Suspect]

REACTIONS (3)
  - DEAFNESS UNILATERAL [None]
  - HEARING IMPAIRED [None]
  - TINNITUS [None]
